FAERS Safety Report 4946493-2 (Version None)
Quarter: 2006Q1

REPORT INFORMATION
  Report Type: 
  Country: None (occurrence: None)
  Receive Date: 20060314
  Receipt Date: 20060302
  Transmission Date: 20060701
  Serious: Yes (Hospitalization)
  Sender: FDA-Public Use
  Company Number: 28713

PATIENT
  Age: 82 Year
  Sex: Male

DRUGS (8)
  1. ALDARA [Suspect]
     Indication: SQUAMOUS CELL CARCINOMA OF SKIN
     Dosage: 5 IN  1 WEEK(S), TOPICAL
     Route: 061
     Dates: start: 20060104, end: 20060224
  2. EXELON [Suspect]
  3. MOEXIPRIL HCL [Suspect]
  4. PAXIL [Suspect]
  5. METAMUCIL [Suspect]
  6. RISPERIDONE [Suspect]
  7. ASCORBIC ACID [Suspect]
  8. VITAMIN A [Suspect]

REACTIONS (7)
  - APPLICATION SITE NECROSIS [None]
  - APPLICATION SITE REACTION [None]
  - APPLICATION SITE ULCER [None]
  - ERYTHEMA MULTIFORME [None]
  - LIP EXFOLIATION [None]
  - SCAB [None]
  - TREATMENT NONCOMPLIANCE [None]
